FAERS Safety Report 5506641-2 (Version None)
Quarter: 2007Q4

REPORT INFORMATION
  Report Type: 
  Country: None (occurrence: None)
  Receive Date: 20071101
  Receipt Date: 20071025
  Transmission Date: 20080405
  Serious: Yes (Hospitalization)
  Sender: FDA-Public Use
  Company Number: SP01657

PATIENT
  Age: 48 Year
  Sex: Female

DRUGS (1)
  1. OSMOPREP [Suspect]
     Indication: BOWEL PREPARATION
     Dosage: 105 GM (SINGLE ADMINISTRATION), ORAL
     Route: 048
     Dates: start: 20071018, end: 20071018

REACTIONS (5)
  - DEHYDRATION [None]
  - DIARRHOEA [None]
  - DRUG DISPENSING ERROR [None]
  - ELECTROLYTE IMBALANCE [None]
  - INCORRECT DOSE ADMINISTERED [None]
